FAERS Safety Report 4591026-6 (Version None)
Quarter: 2005Q1

REPORT INFORMATION
  Report Type: 
  Country: None (occurrence: None)
  Receive Date: 20050225
  Receipt Date: 20050217
  Transmission Date: 20050727
  Serious: Yes (Other)
  Sender: FDA-Public Use
  Company Number: DE-BRISTOL-MYERS SQUIBB COMPANY-12868139

PATIENT

DRUGS (1)
  1. APROVEL TABS [Suspect]
     Route: 048
     Dates: start: 20040101

REACTIONS (1)
  - CARDIAC VALVE DISEASE [None]
